FAERS Safety Report 7099362-9 (Version None)
Quarter: 2010Q4

REPORT INFORMATION
  Report Type: 
  Country: None (occurrence: None)
  Receive Date: 20101112
  Receipt Date: 20090522
  Transmission Date: 20110411
  Serious: No
  Sender: FDA-Public Use
  Company Number: US-KINGPHARMUSA00001-K200900639

PATIENT
  Sex: Female
  Weight: 60.998 kg

DRUGS (6)
  1. ALTACE [Suspect]
     Indication: CARDIAC FAILURE
     Dosage: 5 MG, QD
     Route: 048
  2. LASIX [Concomitant]
     Indication: FLUID RETENTION
     Dosage: 40 MG, QD
     Route: 048
  3. ASPIRIN [Concomitant]
     Dosage: 81 MG, QD
     Route: 048
  4. PERCOCET [Concomitant]
     Indication: PAIN
     Dosage: UNK
     Route: 048
  5. MORPHINE SULFATE [Concomitant]
     Indication: PAIN
     Dosage: UNK
  6. COREG [Suspect]
     Indication: CARDIAC FAILURE
     Dosage: 3.125 MG, BID
     Route: 048

REACTIONS (2)
  - ABDOMINAL DISCOMFORT [None]
  - MALAISE [None]
